FAERS Safety Report 11594051 (Version 1)
Quarter: 2015Q4

REPORT INFORMATION
  Report Type: Spontaneous
  Country: None (occurrence: IT)
  Receive Date: 20151005
  Receipt Date: 20151005
  Transmission Date: 20160304
  Serious: Yes (Other)
  Sender: FDA-Public Use
  Company Number: IT-MEDAC PHARMA, INC.-1042565

PATIENT
  Sex: Female

DRUGS (2)
  1. METHOTREXATE [Suspect]
     Active Substance: METHOTREXATE
     Indication: RHEUMATOID ARTHRITIS
     Route: 058
     Dates: start: 20060101, end: 20150401
  2. ORENCIA [Concomitant]
     Active Substance: ABATACEPT
     Route: 042
     Dates: start: 20100101, end: 20150401

REACTIONS (2)
  - Myeloproliferative disorder [Unknown]
  - Haemochromatosis [Unknown]

NARRATIVE: CASE EVENT DATE: 201504
